FAERS Safety Report 14604917 (Version 3)
Quarter: 2018Q1

REPORT INFORMATION
  Report Type: Spontaneous
  Country: VN (occurrence: VN)
  Receive Date: 20180306
  Receipt Date: 20180328
  Transmission Date: 20180509
  Serious: Yes (Death, Hospitalization, Other)
  Sender: FDA-Public Use
  Company Number: VN-009507513-1802VNM013890

PATIENT
  Sex: Female

DRUGS (2)
  1. KEYTRUDA [Suspect]
     Active Substance: PEMBROLIZUMAB
     Indication: METASTATIC MALIGNANT MELANOMA
     Dosage: 100 MG, CYCLICAL
     Route: 042
  2. KEYTRUDA [Suspect]
     Active Substance: PEMBROLIZUMAB
     Dosage: 100 MG, CYCLICAL
     Route: 042
     Dates: start: 20180205, end: 20180206

REACTIONS (17)
  - Respiratory failure [Recovering/Resolving]
  - Hyperglycaemia [Recovering/Resolving]
  - Anaemia [Recovering/Resolving]
  - Death [Fatal]
  - Haemorrhage subcutaneous [Recovering/Resolving]
  - Acute kidney injury [Recovering/Resolving]
  - Malignant neoplasm progression [Recovering/Resolving]
  - Hypoalbuminaemia [Recovering/Resolving]
  - Ulcer [Recovering/Resolving]
  - Hypertension [Recovering/Resolving]
  - Sepsis [Recovering/Resolving]
  - Hypoproteinaemia [Recovering/Resolving]
  - Hypothyroidism [Recovering/Resolving]
  - Proteus infection [Recovering/Resolving]
  - Pneumonia [Recovering/Resolving]
  - Thrombocytopenia [Recovering/Resolving]
  - Pneumonitis [Recovering/Resolving]

NARRATIVE: CASE EVENT DATE: 201802
